FAERS Safety Report 9837752 (Version 2)
Quarter: 2014Q1

REPORT INFORMATION
  Report Type: Report from Study
  Country: US (occurrence: US)
  Receive Date: 20140123
  Receipt Date: 20140123
  Transmission Date: 20141002
  Serious: Yes (Death, Other)
  Sender: FDA-Public Use
  Company Number: US-SA-200715304GDDC

PATIENT
  Age: 55 Year
  Sex: Female

DRUGS (12)
  1. DOCETAXEL [Suspect]
     Indication: BREAST CANCER
     Route: 042
     Dates: start: 20030714, end: 20030714
  2. DOCETAXEL [Suspect]
     Indication: BREAST CANCER
     Route: 042
     Dates: start: 20030915, end: 20030915
  3. DOXORUBICIN [Suspect]
     Indication: BREAST CANCER
     Route: 042
     Dates: start: 20030414, end: 20030414
  4. DOXORUBICIN [Suspect]
     Indication: BREAST CANCER
     Route: 042
     Dates: start: 20030618, end: 20030618
  5. CYCLOPHOSPHAMIDE [Suspect]
     Indication: BREAST CANCER
     Route: 042
     Dates: start: 20030414, end: 20030414
  6. CYCLOPHOSPHAMIDE [Suspect]
     Indication: BREAST CANCER
     Route: 042
     Dates: start: 20030618, end: 20030618
  7. ARIMIDEX [Concomitant]
  8. GEN-ACYCLOVIR [Concomitant]
     Route: 048
  9. TACROLIMUS [Concomitant]
     Dosage: DOSE: 0.5 (UNITS UNKNOWN)
  10. VORICONAZOLE [Concomitant]
  11. SIROLIMUS [Concomitant]
  12. BACTRIM [Concomitant]

REACTIONS (1)
  - Acute myeloid leukaemia [Fatal]
